FAERS Safety Report 10307768 (Version 2)
Quarter: 2014Q4

REPORT INFORMATION
  Report Type: Spontaneous
  Country: US (occurrence: US)
  Receive Date: 20140716
  Receipt Date: 20141022
  Transmission Date: 20150528
  Serious: Yes (Hospitalization)
  Sender: FDA-Public Use
  Company Number: US-ASTRAZENECA-2014SE49634

PATIENT
  Age: 31200 Day
  Sex: Female

DRUGS (3)
  1. SYMBICORT [Suspect]
     Active Substance: BUDESONIDE\FORMOTEROL FUMARATE DIHYDRATE
     Dosage: 80/4.5MCG, 2 PUFFS BID
     Route: 055
     Dates: start: 2014
  2. SYMBICORT [Suspect]
     Active Substance: BUDESONIDE\FORMOTEROL FUMARATE DIHYDRATE
     Dosage: 80/4.5MCG, 2 PUFFS BID
     Route: 055
     Dates: end: 201401
  3. ADVAIR HFA [Concomitant]
     Active Substance: FLUTICASONE PROPIONATE\SALMETEROL XINAFOATE
     Dates: start: 201401

REACTIONS (12)
  - Circumstance or information capable of leading to device use error [Unknown]
  - Weight fluctuation [Unknown]
  - Myocardial infarction [Unknown]
  - Adverse event [Unknown]
  - Dysstasia [Unknown]
  - Feeling abnormal [Unknown]
  - Fluid overload [Unknown]
  - Urinary tract infection [Unknown]
  - Nasopharyngitis [Recovered/Resolved]
  - General physical condition abnormal [Unknown]
  - Diarrhoea [Unknown]
  - Sepsis [Unknown]

NARRATIVE: CASE EVENT DATE: 20140624
